FAERS Safety Report 5917673-4 (Version None)
Quarter: 2008Q4

REPORT INFORMATION
  Report Type: 
  Country: None (occurrence: None)
  Receive Date: 20081009
  Receipt Date: 20080923
  Transmission Date: 20090506
  Serious: Yes (Death)
  Sender: FDA-Public Use
  Company Number: 2008AL0010735

PATIENT
  Sex: Male

DRUGS (1)
  1. DIGOXIN [Suspect]
     Dosage: 0.25MG, PO
     Route: 048

REACTIONS (8)
  - ANHEDONIA [None]
  - ANXIETY [None]
  - DISTURBANCE IN SOCIAL BEHAVIOUR [None]
  - ECONOMIC PROBLEM [None]
  - EMOTIONAL DISORDER [None]
  - FEAR [None]
  - INJURY [None]
  - PAIN [None]
